FAERS Safety Report 18458282 (Version 3)
Quarter: 2020Q4

REPORT INFORMATION
  Report Type: Report from Study
  Country: US (occurrence: US)
  Receive Date: 20201103
  Receipt Date: 20201211
  Transmission Date: 20210114
  Serious: Yes (Hospitalization)
  Sender: FDA-Public Use
  Company Number: US-EISAI MEDICAL RESEARCH-EC-2020-083064

PATIENT
  Age: 73 Year
  Sex: Male
  Weight: 102 kg

DRUGS (9)
  1. ATORVASTATIN [Concomitant]
     Active Substance: ATORVASTATIN
  2. LEVOTHYROXINE. [Concomitant]
     Active Substance: LEVOTHYROXINE
  3. LENVIMA [Suspect]
     Active Substance: LENVATINIB
     Route: 048
     Dates: start: 202011, end: 20201110
  4. LENVIMA [Suspect]
     Active Substance: LENVATINIB
     Indication: THYROID CANCER
     Route: 048
     Dates: start: 2020, end: 202010
  5. LISINOPRIL. [Concomitant]
     Active Substance: LISINOPRIL
  6. TRAMADOL. [Concomitant]
     Active Substance: TRAMADOL
  7. BAYER TYLENOL [Concomitant]
  8. METFORMIN [Concomitant]
     Active Substance: METFORMIN HYDROCHLORIDE
  9. GLIMEPIRIDE. [Concomitant]
     Active Substance: GLIMEPIRIDE

REACTIONS (5)
  - Seizure [Unknown]
  - Cholecystitis infective [Unknown]
  - Cerebrovascular accident [Unknown]
  - Dehydration [Unknown]
  - Dysphagia [Unknown]

NARRATIVE: CASE EVENT DATE: 202010
